FAERS Safety Report 25300351 (Version 1)
Quarter: 2025Q2

REPORT INFORMATION
  Report Type: Spontaneous
  Country: SE (occurrence: SE)
  Receive Date: 20250512
  Receipt Date: 20250512
  Transmission Date: 20250716
  Serious: Yes (Disabling)
  Sender: ORGANON
  Company Number: None

PATIENT
  Age: 62 Year
  Sex: Female
  Weight: 60 kg

DRUGS (1)
  1. EBASTINE [Suspect]
     Active Substance: EBASTINE
     Indication: Dermatitis allergic
     Dosage: 1 X 1 (FILM-COATED TABLET)
     Dates: start: 20250421, end: 20250423

REACTIONS (2)
  - Epistaxis [Recovered/Resolved with Sequelae]
  - Product use issue [Unknown]

NARRATIVE: CASE EVENT DATE: 20250421
